FAERS Safety Report 24940736 (Version 2)
Quarter: 2025Q1

REPORT INFORMATION
  Report Type: Spontaneous
  Country: HU (occurrence: HU)
  Receive Date: 20250207
  Receipt Date: 20250220
  Transmission Date: 20250409
  Serious: Yes (Other)
  Sender: CELLTRION
  Company Number: None

PATIENT

DRUGS (3)
  1. VEGZELMA [Suspect]
     Active Substance: BEVACIZUMAB-ADCD
     Indication: Ovarian cancer
     Route: 042
     Dates: start: 20240624, end: 20240715
  2. VEGZELMA [Suspect]
     Active Substance: BEVACIZUMAB-ADCD
     Route: 042
     Dates: start: 20240624, end: 20240715
  3. CHLOROPYRAMINE HYDROCHLORIDE [Concomitant]
     Active Substance: CHLOROPYRAMINE HYDROCHLORIDE
     Dates: start: 20240624, end: 20240715

REACTIONS (2)
  - Toxic skin eruption [Recovering/Resolving]
  - Product quality issue [Unknown]

NARRATIVE: CASE EVENT DATE: 20240715
